FAERS Safety Report 8312739-6 (Version None)
Quarter: 2012Q2

REPORT INFORMATION
  Report Type: 
  Country: None (occurrence: None)
  Receive Date: 20120426
  Receipt Date: 20120417
  Transmission Date: 20120825
  Serious: Yes (Hospitalization)
  Sender: FDA-Public Use
  Company Number: US-BIOGENIDEC-2012BI013476

PATIENT
  Age: 32 Year
  Sex: Female

DRUGS (3)
  1. AVONEX [Suspect]
     Route: 030
     Dates: start: 20100910
  2. AVONEX [Suspect]
     Indication: MULTIPLE SCLEROSIS
     Route: 030
     Dates: start: 20000101, end: 20010101
  3. IBUPROFEN [Concomitant]
     Indication: PREMEDICATION

REACTIONS (10)
  - PNEUMONIA [None]
  - OVERDOSE [None]
  - TREMOR [None]
  - PAIN [None]
  - NASOPHARYNGITIS [None]
  - MULTIPLE SCLEROSIS RELAPSE [None]
  - EAR INFECTION [None]
  - BRONCHITIS [None]
  - SENSORY DISTURBANCE [None]
  - INFLUENZA LIKE ILLNESS [None]
